FAERS Safety Report 21470767 (Version 2)
Quarter: 2023Q1

REPORT INFORMATION
  Report Type: Spontaneous
  Country: CN (occurrence: None)
  Receive Date: 20221018
  Receipt Date: 20230322
  Transmission Date: 20230418
  Serious: Yes (Other)
  Sender: FDA-Public Use
  Company Number: CN-ROCHE-3201194

PATIENT
  Age: 80 Year
  Sex: Male

DRUGS (27)
  1. RITUXIMAB [Suspect]
     Active Substance: RITUXIMAB
     Indication: Diffuse large B-cell lymphoma
     Dosage: RMINICHOP,R-CHOP
     Route: 065
  2. RITUXIMAB [Suspect]
     Active Substance: RITUXIMAB
     Dosage: BRD
     Route: 065
     Dates: start: 20200430
  3. RITUXIMAB [Suspect]
     Active Substance: RITUXIMAB
     Dosage: R-GDP
     Route: 065
     Dates: start: 20200909
  4. RITUXIMAB [Suspect]
     Active Substance: RITUXIMAB
     Dosage: POLA+RR
     Route: 065
     Dates: start: 20201016
  5. RITUXIMAB [Suspect]
     Active Substance: RITUXIMAB
     Dosage: POLA + R + ZANUBRUTINIB + POMALIDOMIDE
     Route: 065
     Dates: start: 20210121
  6. POLATUZUMAB VEDOTIN [Suspect]
     Active Substance: POLATUZUMAB VEDOTIN
     Indication: Diffuse large B-cell lymphoma
     Dosage: POLA+RR
     Route: 042
     Dates: start: 20201016
  7. POLATUZUMAB VEDOTIN [Suspect]
     Active Substance: POLATUZUMAB VEDOTIN
     Dosage: POLA + R + ZANUBRUTINIB + POMALIDOMIDE
     Route: 042
     Dates: start: 20210121
  8. POLATUZUMAB VEDOTIN [Suspect]
     Active Substance: POLATUZUMAB VEDOTIN
     Dosage: POLA + ZANUBRUTINIB + POMALIDOMIDE + DEXAMETHASONE, 21-FEB-2021, 23-MAR-2021
     Route: 042
  9. CYCLOPHOSPHAMIDE [Concomitant]
     Active Substance: CYCLOPHOSPHAMIDE
     Indication: Diffuse large B-cell lymphoma
     Dosage: R-MINICHOP AND R-CHOP
  10. DOXORUBICIN [Concomitant]
     Active Substance: DOXORUBICIN
     Indication: Diffuse large B-cell lymphoma
     Dosage: R-MINICHOP, R-CHOP
  11. VINCRISTINE [Concomitant]
     Active Substance: VINCRISTINE
     Indication: Diffuse large B-cell lymphoma
     Dosage: R-MINICHOP, R-CHOP
  12. PREDNISONE [Concomitant]
     Active Substance: PREDNISONE
     Indication: Diffuse large B-cell lymphoma
     Dosage: R-MINICHOP, R-CHOP
  13. LENALIDOMIDE [Concomitant]
     Active Substance: LENALIDOMIDE
     Indication: Diffuse large B-cell lymphoma
     Route: 048
     Dates: start: 201911
  14. LENALIDOMIDE [Concomitant]
     Active Substance: LENALIDOMIDE
     Dosage: POLA+RR
     Dates: start: 20201016
  15. LENALIDOMIDE [Concomitant]
     Active Substance: LENALIDOMIDE
     Dosage: POLA+RR; 12-NOV-2020, 15-DEC-2020
  16. BENDAMUSTINE [Concomitant]
     Active Substance: BENDAMUSTINE
     Indication: Diffuse large B-cell lymphoma
     Dosage: BRD
     Dates: start: 20200430
  17. BENDAMUSTINE [Concomitant]
     Active Substance: BENDAMUSTINE
     Dosage: BRD; 28-MAY-2020, 30-JUN-2020, 06-AUG-2020
  18. DEXAMETHASONE [Concomitant]
     Active Substance: DEXAMETHASONE
     Indication: Diffuse large B-cell lymphoma
     Dosage: BRD
     Dates: start: 20200430
  19. DEXAMETHASONE [Concomitant]
     Active Substance: DEXAMETHASONE
     Dosage: R-GDP
     Dates: start: 20200909
  20. DEXAMETHASONE [Concomitant]
     Active Substance: DEXAMETHASONE
     Dosage: POLA + ZANUBRUTINIB + POMALIDOMIDE + DEXAMETHASONE; 21-FEB-2021, 23-MAR-2021
     Route: 065
  21. GEMCITABINE [Concomitant]
     Active Substance: GEMCITABINE
     Indication: Diffuse large B-cell lymphoma
     Dosage: R-GDP
     Dates: start: 20200909
  22. CISPLATIN [Concomitant]
     Active Substance: CISPLATIN
     Indication: Diffuse large B-cell lymphoma
     Dosage: R-GDP
     Dates: start: 20200909
  23. ZANUBRUTINIB [Concomitant]
     Active Substance: ZANUBRUTINIB
     Indication: Diffuse large B-cell lymphoma
     Dosage: POLA + R + ZANUBRUTINIB + POMALIDOMIDE
     Dates: start: 20210121
  24. ZANUBRUTINIB [Concomitant]
     Active Substance: ZANUBRUTINIB
     Dosage: POLA + ZANUBRUTINIB + POMALIDOMIDE + DEXAMETHASONE; 21-FEB-2021, 23-MAR-2021
     Route: 065
  25. POMALIDOMIDE [Concomitant]
     Active Substance: POMALIDOMIDE
     Indication: Diffuse large B-cell lymphoma
     Dosage: POLA + R + ZANUBRUTINIB + POMALIDOMIDE
     Dates: start: 20210121
  26. POMALIDOMIDE [Concomitant]
     Active Substance: POMALIDOMIDE
     Dosage: POLA + ZANUBRUTINIB + POMALIDOMIDE + DEXAMETHASONE; 21-FEB-2021, 23-MAR-2021
     Route: 065
  27. POMALIDOMIDE [Concomitant]
     Active Substance: POMALIDOMIDE
     Dosage: POMALIDOMIDE + PD1 MAB + OBRUTINIB + CEDARAMIDE; 26-APR-2021, 20-MAY-2021
     Route: 065

REACTIONS (4)
  - Cough [Unknown]
  - Rash [Unknown]
  - Pneumonia [Unknown]
  - Respiratory failure [Unknown]

NARRATIVE: CASE EVENT DATE: 20210603
